FAERS Safety Report 21319550 (Version 1)
Quarter: 2022Q3

REPORT INFORMATION
  Report Type: Spontaneous
  Country: US (occurrence: US)
  Receive Date: 20220911
  Receipt Date: 20220911
  Transmission Date: 20221027
  Serious: No
  Sender: FDA-Public Use
  Company Number: US-SA-SAC20220905000816

PATIENT
  Sex: Male
  Weight: 86.6 kg

DRUGS (6)
  1. DUPIXENT [Suspect]
     Active Substance: DUPILUMAB
     Indication: Dermatitis
     Dosage: 300MG, FREQUENCY: EVERY 21 DAYS
     Route: 058
  2. HYDROCORTISONE [Concomitant]
     Active Substance: HYDROCORTISONE
  3. HUMIRA [Concomitant]
     Active Substance: ADALIMUMAB
  4. IBUPROFEN IB [Concomitant]
     Active Substance: IBUPROFEN
  5. FLUOCINONIDE [Concomitant]
     Active Substance: FLUOCINONIDE
  6. CLARITIN-D NOS [Concomitant]
     Active Substance: LORATADINE\PSEUDOEPHEDRINE SULFATE

REACTIONS (2)
  - Hypersensitivity [Unknown]
  - Product use in unapproved indication [Unknown]
